FAERS Safety Report 5949031-0 (Version None)
Quarter: 2008Q4

REPORT INFORMATION
  Report Type: 
  Country: None (occurrence: None)
  Receive Date: 20081021
  Receipt Date: 20080418
  Transmission Date: 20090506
  Serious: Yes (Other)
  Sender: FDA-Public Use
  Company Number: US-WYE-H03669308

PATIENT
  Age: 65 Year
  Sex: Female

DRUGS (1)
  1. PREMARIN [Suspect]
     Indication: HYSTERECTOMY
     Dosage: HALF OF A 0.3MG TABLET (FREQUENCY UNSPECIFIED), ORAL
     Route: 048
     Dates: start: 19650101, end: 20000101

REACTIONS (1)
  - BREAST CANCER [None]
